FAERS Safety Report 7592404-3 (Version None)
Quarter: 2011Q3

REPORT INFORMATION
  Report Type: 
  Country: None (occurrence: None)
  Receive Date: 20110706
  Receipt Date: 20110624
  Transmission Date: 20111222
  Serious: Yes (Other)
  Sender: FDA-Public Use
  Company Number: IT-AMGEN-KDC415679

PATIENT
  Age: 69 Year
  Sex: Female

DRUGS (2)
  1. DENOSUMAB [Suspect]
     Indication: METASTASES TO BONE
     Dosage: UNK
     Dates: start: 20091111, end: 20100202
  2. DOXORUBICIN HCL [Concomitant]
     Dosage: UNK
     Dates: start: 20100119

REACTIONS (1)
  - OSTEONECROSIS [None]
